FAERS Safety Report 12438916 (Version 1)
Quarter: 2016Q2

REPORT INFORMATION
  Report Type: Report from Study
  Country: US (occurrence: US)
  Receive Date: 20160606
  Receipt Date: 20160606
  Transmission Date: 20160815
  Serious: Yes (Other)
  Sender: FDA-Public Use
  Company Number: US-MALLINCKRODT-T201602140

PATIENT
  Age: 74 Year
  Sex: Female

DRUGS (2)
  1. REPOSITORY CORTICOTROPIN INJECTION [Suspect]
     Active Substance: CORTICOTROPIN
     Indication: SARCOIDOSIS
     Dosage: 80 UNITS Q72 HOURS
     Route: 030
     Dates: start: 20151203
  2. LASIX [Concomitant]
     Active Substance: FUROSEMIDE
     Indication: PERIPHERAL SWELLING
     Dosage: INCREASED FOR 4 DAYS TO MANAGE INCREASED SWELLING
     Route: 065
     Dates: start: 201603

REACTIONS (3)
  - Injection site haemorrhage [Not Recovered/Not Resolved]
  - Peripheral swelling [Recovered/Resolved]
  - Thrombophlebitis superficial [Unknown]

NARRATIVE: CASE EVENT DATE: 20160209
